FAERS Safety Report 6605044-7 (Version None)
Quarter: 2010Q1

REPORT INFORMATION
  Report Type: 
  Country: None (occurrence: None)
  Receive Date: 20100226
  Receipt Date: 20100219
  Transmission Date: 20100710
  Serious: Yes (Life-Threatening, Hospitalization)
  Sender: FDA-Public Use
  Company Number: JP-ASTRAZENECA-2010SE06744

PATIENT
  Age: 24092 Day
  Sex: Female
  Weight: 54.4 kg

DRUGS (5)
  1. SEROQUEL [Suspect]
     Indication: SCHIZOPHRENIA
     Route: 048
     Dates: start: 20020624, end: 20100203
  2. PURSENIDE [Concomitant]
     Route: 048
     Dates: start: 20020212, end: 20100203
  3. GASCON [Concomitant]
     Route: 048
     Dates: start: 20020212, end: 20100203
  4. BLADDERON [Concomitant]
     Route: 048
     Dates: start: 20020212, end: 20100203
  5. ALESION [Concomitant]
     Route: 048
     Dates: start: 20050118, end: 20100203

REACTIONS (1)
  - HAEMATEMESIS [None]
